FAERS Safety Report 12947465 (Version 2)
Quarter: 2019Q2

REPORT INFORMATION
  Report Type: Spontaneous
  Country: US (occurrence: US)
  Receive Date: 20161116
  Receipt Date: 20190531
  Transmission Date: 20190711
  Serious: Yes (Other)
  Sender: FDA-Public Use
  Company Number: US-SA-2016SA205995

PATIENT
  Age: 89 Year
  Sex: Male

DRUGS (2)
  1. LANTUS SOLOSTAR [Suspect]
     Active Substance: INSULIN GLARGINE
     Indication: TYPE 2 DIABETES MELLITUS
     Dosage: 12 DF,QD
     Route: 065
     Dates: start: 201511
  2. LANTUS SOLOSTAR [Suspect]
     Active Substance: INSULIN GLARGINE
     Dosage: 12 U, QD
     Route: 065

REACTIONS (4)
  - Cerebrovascular accident [Unknown]
  - Product dose omission [Unknown]
  - Cognitive disorder [Unknown]
  - Device issue [Unknown]
